FAERS Safety Report 25736204 (Version 1)
Quarter: 2025Q3

REPORT INFORMATION
  Report Type: Spontaneous
  Country: US (occurrence: US)
  Receive Date: 20250828
  Receipt Date: 20250828
  Transmission Date: 20251020
  Serious: No
  Sender: SANOFI AVENTIS
  Company Number: US-SA-2025SA255511

PATIENT
  Age: 50 Year
  Sex: Female

DRUGS (1)
  1. DUPIXENT [Suspect]
     Active Substance: DUPILUMAB
     Dosage: 300 MG, QOW
     Route: 058

REACTIONS (6)
  - Chronic obstructive pulmonary disease [Unknown]
  - Secretion discharge [Not Recovered/Not Resolved]
  - Constipation [Unknown]
  - Dry mouth [Unknown]
  - Dysuria [Unknown]
  - Heart rate increased [Unknown]
